FAERS Safety Report 6662822-6 (Version None)
Quarter: 2010Q2

REPORT INFORMATION
  Report Type: 
  Country: None (occurrence: None)
  Receive Date: 20100401
  Receipt Date: 20100324
  Transmission Date: 20101027
  Serious: No
  Sender: FDA-Public Use
  Company Number: US-BIOGENIDEC-2010BI010312

PATIENT
  Sex: Female

DRUGS (3)
  1. AVONEX [Suspect]
     Indication: MULTIPLE SCLEROSIS
     Route: 030
     Dates: start: 19990919
  2. AVONEX [Suspect]
     Route: 030
     Dates: end: 20070101
  3. AVONEX [Suspect]
     Route: 030
     Dates: start: 20090101

REACTIONS (4)
  - ABASIA [None]
  - IMPAIRED DRIVING ABILITY [None]
  - INFLUENZA LIKE ILLNESS [None]
  - MOBILITY DECREASED [None]
